FAERS Safety Report 23246812 (Version 1)
Quarter: 2023Q4

REPORT INFORMATION
  Report Type: Spontaneous
  Country: JP (occurrence: JP)
  Receive Date: 20231130
  Receipt Date: 20231130
  Transmission Date: 20240110
  Serious: Yes (Other)
  Sender: FDA-Public Use
  Company Number: JP-CELGENE-JPN-20200803869

PATIENT
  Age: 64 Year
  Sex: Male

DRUGS (2)
  1. ABRAXANE [Suspect]
     Active Substance: PACLITAXEL
     Indication: Adenocarcinoma pancreas
     Dosage: DETAILS NOT REPORTED, ADMINISTERED FOR APPROXIMATELY 2 MONTHS
     Route: 041
     Dates: start: 20151124
  2. GEMCITABINE HYDROCHLORIDE [Suspect]
     Active Substance: GEMCITABINE HYDROCHLORIDE
     Indication: Adenocarcinoma pancreas
     Dosage: DETAILS NOT REPORTED, ADMINISTERED FOR APPROXIMATELY 2 MONTHS
     Route: 041
     Dates: start: 20151124

REACTIONS (1)
  - Lung disorder [Unknown]

NARRATIVE: CASE EVENT DATE: 20160101
